FAERS Safety Report 7428910-1 (Version None)
Quarter: 2011Q2

REPORT INFORMATION
  Report Type: 
  Country: None (occurrence: None)
  Receive Date: 20110412
  Receipt Date: 20110330
  Transmission Date: 20111010
  Serious: Yes (Hospitalization)
  Sender: FDA-Public Use
  Company Number: JP-2011-10575

PATIENT
  Age: 73 Year
  Sex: Female
  Weight: 52.2 kg

DRUGS (8)
  1. PRIMPERAN INJ [Concomitant]
  2. INCARDIPINE (NICARDIPINE HYDROCHLORIDE) [Concomitant]
  3. DIPHENIDOL HCL (DIFENIDOL HYDROCHLORIDE) [Concomitant]
  4. TERAZOSIN HCL [Concomitant]
  5. PLETAL [Suspect]
     Indication: THROMBOSIS PROPHYLAXIS
     Dosage: 100 MG MILLIGRAM(S), BID, ORAL
     Route: 048
     Dates: start: 20101217, end: 20110315
  6. CHLORZOXAZONE [Concomitant]
  7. ASPIRIN [Concomitant]
  8. SENNOSIDES (SENNOSIDE A+B) [Concomitant]

REACTIONS (1)
  - ISCHAEMIC STROKE [None]
